FAERS Safety Report 15469123 (Version 3)
Quarter: 2018Q4

REPORT INFORMATION
  Report Type: Spontaneous
  Country: CH (occurrence: CH)
  Receive Date: 20181005
  Receipt Date: 20181206
  Transmission Date: 20190205
  Serious: Yes (Hospitalization, Other)
  Sender: FDA-Public Use
  Company Number: CH-BRISTOL-MYERS SQUIBB COMPANY-BMS-2018-090119

PATIENT
  Age: 67 Year
  Sex: Female

DRUGS (4)
  1. YERVOY [Suspect]
     Active Substance: IPILIMUMAB
     Indication: METASTATIC MALIGNANT MELANOMA
     Dosage: 159 MG, IN TOTAL
     Route: 065
     Dates: start: 20171115, end: 20180124
  2. PRIMPERAN [Concomitant]
     Active Substance: METOCLOPRAMIDE HYDROCHLORIDE
     Indication: PRODUCT USED FOR UNKNOWN INDICATION
     Dosage: 10 MG, UNK
     Route: 048
  3. NOVALGIN (METAMIZOLE SODIUM) [Concomitant]
     Active Substance: METAMIZOLE SODIUM
     Indication: PRODUCT USED FOR UNKNOWN INDICATION
     Dosage: 500 MG, UNK
     Route: 048
  4. OPDIVO [Suspect]
     Active Substance: NIVOLUMAB
     Indication: METASTATIC MALIGNANT MELANOMA
     Dosage: 53 MG, IN TOTAL
     Route: 065
     Dates: start: 20171115, end: 20180124

REACTIONS (9)
  - Lymphocytic hypophysitis [Recovered/Resolved]
  - Meningitis aseptic [Unknown]
  - Nausea [Unknown]
  - Malignant neoplasm progression [Unknown]
  - General physical health deterioration [Recovering/Resolving]
  - Decreased appetite [Unknown]
  - Arthralgia [Unknown]
  - Sarcoidosis [Unknown]
  - Musculoskeletal pain [Unknown]

NARRATIVE: CASE EVENT DATE: 20180213
